FAERS Safety Report 23488860 (Version 1)
Quarter: 2024Q1

REPORT INFORMATION
  Report Type: Spontaneous
  Country: US (occurrence: US)
  Receive Date: 20240206
  Receipt Date: 20240206
  Transmission Date: 20240410
  Serious: No
  Sender: FDA-Public Use
  Company Number: US-INSUD PHARMA-2401US00586

PATIENT

DRUGS (2)
  1. TYBLUME [Suspect]
     Active Substance: ETHINYL ESTRADIOL\LEVONORGESTREL
     Indication: Heavy menstrual bleeding
     Dosage: 3 TABLETS DAILY X 7 DAYS
  2. TYBLUME [Suspect]
     Active Substance: ETHINYL ESTRADIOL\LEVONORGESTREL
     Dosage: ACTIVE TABLETS CONTINUOUSLY

REACTIONS (2)
  - Nausea [Recovered/Resolved]
  - Off label use [Unknown]
